FAERS Safety Report 7033286-8 (Version None)
Quarter: 2010Q4

REPORT INFORMATION
  Report Type: 
  Country: None (occurrence: None)
  Receive Date: 20101007
  Receipt Date: 20100930
  Transmission Date: 20110411
  Serious: Yes (Other)
  Sender: FDA-Public Use
  Company Number: A0885137A

PATIENT
  Age: 37 Year
  Sex: Female

DRUGS (3)
  1. EPIVIR [Suspect]
     Indication: ANTIVIRAL TREATMENT
     Route: 048
     Dates: start: 20051013
  2. ISENTRESS [Suspect]
     Indication: ANTIVIRAL TREATMENT
     Dosage: 800MG PER DAY
     Route: 048
     Dates: start: 20051013
  3. TRUVADA [Suspect]
     Indication: ANTIVIRAL TREATMENT
     Route: 048
     Dates: start: 20051013, end: 20070408

REACTIONS (2)
  - ABORTION INDUCED [None]
  - DRUG EXPOSURE DURING PREGNANCY [None]
